FAERS Safety Report 7557334-1 (Version None)
Quarter: 2011Q2

REPORT INFORMATION
  Report Type: 
  Country: None (occurrence: None)
  Receive Date: 20110620
  Receipt Date: 20101102
  Transmission Date: 20111010
  Serious: Yes (Death)
  Sender: FDA-Public Use
  Company Number: PHEH2009US13236

PATIENT
  Sex: Male
  Weight: 43 kg

DRUGS (17)
  1. LEXAPRO [Concomitant]
  2. LINEZOLID [Concomitant]
     Route: 042
  3. NIFEDIPINE [Concomitant]
     Route: 042
  4. FAMVIR [Concomitant]
     Route: 042
  5. VITAMIN D [Concomitant]
  6. ASACOL [Concomitant]
     Route: 048
  7. ANIDULAFUNGIN [Concomitant]
     Route: 042
  8. NEUPOGEN [Concomitant]
     Route: 042
  9. EXJADE [Suspect]
     Indication: APLASTIC ANAEMIA
     Dosage: 750 MG DAILY
     Route: 048
  10. IG GAMMA [Concomitant]
  11. ACTIGALL [Concomitant]
     Route: 048
  12. PREDNISONE [Concomitant]
     Route: 042
  13. MEROPENEM [Concomitant]
     Route: 042
  14. EPOGEN [Concomitant]
  15. MICONAZOLE [Concomitant]
  16. EXJADE [Suspect]
     Indication: IRON OVERLOAD
  17. FK 506 [Concomitant]
     Route: 042

REACTIONS (3)
  - VOMITING [None]
  - DIARRHOEA [None]
  - DEATH [None]
